FAERS Safety Report 8137755-9 (Version None)
Quarter: 2012Q1

REPORT INFORMATION
  Report Type: 
  Country: None (occurrence: None)
  Receive Date: 20120215
  Receipt Date: 20120131
  Transmission Date: 20120608
  Serious: Yes (Hospitalization)
  Sender: FDA-Public Use
  Company Number: US-COVIDIEN/TYCO HEALTHCARE/MALLINCKRODT-T201200550

PATIENT
  Age: 59 Year
  Sex: Female
  Weight: 86.8 kg

DRUGS (7)
  1. METHADOSE [Suspect]
     Dosage: 6 MG IV BEFORE TAKING LETRAZOLE ND 6 MG IV AFTER TAKING LETROZOLE FOR 7 DAYS
     Route: 042
  2. VITAMIN D [Concomitant]
  3. VITAMIN C                          /00008001/ [Concomitant]
  4. VITAMIN E                          /00110501/ [Concomitant]
  5. VITAMIN B6 [Concomitant]
  6. LETROZOLE [Suspect]
     Dosage: 2.5 MG, QD
  7. CALCIUM [Concomitant]

REACTIONS (2)
  - TOXICITY TO VARIOUS AGENTS [None]
  - DRUG INTERACTION [None]
